FAERS Safety Report 6128331-8 (Version None)
Quarter: 2009Q1

REPORT INFORMATION
  Report Type: 
  Country: None (occurrence: None)
  Receive Date: 20090323
  Receipt Date: 20090317
  Transmission Date: 20090719
  Serious: Yes (Hospitalization)
  Sender: FDA-Public Use
  Company Number: B0534514A

PATIENT
  Age: 56 Year
  Sex: Female

DRUGS (7)
  1. BECOTIDE [Suspect]
     Indication: DRUG USE FOR UNKNOWN INDICATION
  2. SERETIDE [Suspect]
     Indication: ASTHMA
     Dosage: 1PUFF TWICE PER DAY
     Route: 055
     Dates: start: 20080101
  3. VENTOLIN [Suspect]
     Indication: ASTHMA
     Dosage: 100MCG AS REQUIRED
     Route: 055
  4. SIMVASTATIN [Suspect]
     Dates: start: 20081201
  5. HYDROXYCHLOROQUINE [Suspect]
     Indication: ARTHRITIS
     Dates: start: 20080101
  6. BENDROFLUAZIDE [Suspect]
     Indication: FLUID RETENTION
  7. ANTIHISTAMINES [Suspect]
     Indication: DRUG USE FOR UNKNOWN INDICATION

REACTIONS (9)
  - CHEST DISCOMFORT [None]
  - DRUG INEFFECTIVE [None]
  - DYSPNOEA [None]
  - INCREASED UPPER AIRWAY SECRETION [None]
  - LOWER RESPIRATORY TRACT INFECTION [None]
  - MALAISE [None]
  - NASOPHARYNGITIS [None]
  - PRODUCTIVE COUGH [None]
  - WHEEZING [None]
